FAERS Safety Report 21113526 (Version 1)
Quarter: 2022Q3

REPORT INFORMATION
  Report Type: Spontaneous
  Country: US (occurrence: US)
  Receive Date: 20220721
  Receipt Date: 20220721
  Transmission Date: 20221027
  Serious: No
  Sender: FDA-Public Use
  Company Number: US-Covis Pharma GmbH-2022COV02192

PATIENT
  Sex: Female

DRUGS (1)
  1. ALVESCO [Suspect]
     Active Substance: CICLESONIDE
     Indication: Chronic obstructive pulmonary disease
     Dosage: INHALE, 1 PUFF BY MOUTH 1 X DAILY

REACTIONS (2)
  - Cough [Recovered/Resolved]
  - Off label use [Recovered/Resolved]
